FAERS Safety Report 12652871 (Version 1)
Quarter: 2016Q3

REPORT INFORMATION
  Report Type: Spontaneous
  Country: TR (occurrence: TR)
  Receive Date: 20160815
  Receipt Date: 20160815
  Transmission Date: 20161109
  Serious: Yes (Hospitalization)
  Sender: FDA-Public Use
  Company Number: TR-OTSUKA-2016_019693

PATIENT
  Age: 76 Year
  Sex: Male

DRUGS (1)
  1. DACOGEN [Suspect]
     Active Substance: DECITABINE
     Indication: ACUTE MYELOID LEUKAEMIA
     Dosage: 20 MG/M2, UNK, 1-5 DAY
     Route: 065
     Dates: start: 20160516

REACTIONS (5)
  - General physical condition abnormal [Unknown]
  - Anorectal discomfort [Unknown]
  - Haematuria [Unknown]
  - Pyrexia [Unknown]
  - Hypokalaemia [Unknown]

NARRATIVE: CASE EVENT DATE: 201605
